FAERS Safety Report 6958522-5 (Version None)
Quarter: 2010Q3

REPORT INFORMATION
  Report Type: 
  Country: None (occurrence: None)
  Receive Date: 20100830
  Receipt Date: 20100830
  Transmission Date: 20110219
  Serious: No
  Sender: FDA-Public Use
  Company Number: None

PATIENT
  Sex: Female
  Weight: 51.2565 kg

DRUGS (3)
  1. HYDROCORTISONE BUTYRATE [Suspect]
     Indication: BURNING SENSATION
     Dosage: TO AFFECTED AREA 2X DAILY SKIN
     Route: 061
  2. HYDROCORTISONE BUTYRATE [Suspect]
     Indication: ERYTHEMA
     Dosage: TO AFFECTED AREA 2X DAILY SKIN
     Route: 061
  3. HYDROCORTISONE BUTYRATE [Suspect]
     Indication: PRURITUS
     Dosage: TO AFFECTED AREA 2X DAILY SKIN
     Route: 061

REACTIONS (4)
  - BURNING SENSATION [None]
  - CONDITION AGGRAVATED [None]
  - PRURITUS [None]
  - RASH MACULO-PAPULAR [None]
